FAERS Safety Report 9479605 (Version 4)
Quarter: 2014Q1

REPORT INFORMATION
  Report Type: Report from Study
  Country: US (occurrence: US)
  Receive Date: 20130827
  Receipt Date: 20140213
  Transmission Date: 20141002
  Serious: No
  Sender: FDA-Public Use
  Company Number: PHEH2013US017939

PATIENT
  Age: 60 Year
  Sex: Female
  Weight: 73.92 kg

DRUGS (6)
  1. TASIGNA [Suspect]
     Indication: CHRONIC MYELOID LEUKAEMIA
     Dosage: 200 MG, BID
     Route: 048
  2. TASIGNA [Suspect]
     Dosage: 200 MG
     Route: 048
     Dates: end: 20130729
  3. TASIGNA [Suspect]
     Dosage: 400 MG DAILY, SLOWLY TITRATED TO 300 MG BID
     Dates: start: 20130731
  4. NASONEX [Concomitant]
     Dosage: 50 UG
  5. OMEPRAZOLE [Concomitant]
     Dosage: 40 MG
  6. ALLEGRA [Concomitant]

REACTIONS (4)
  - Influenza like illness [Recovering/Resolving]
  - Headache [Recovering/Resolving]
  - Nausea [Unknown]
  - Musculoskeletal pain [Recovering/Resolving]
